FAERS Safety Report 5747781-2 (Version None)
Quarter: 2008Q2

REPORT INFORMATION
  Report Type: 
  Country: None (occurrence: None)
  Receive Date: 20080523
  Receipt Date: 20080516
  Transmission Date: 20081010
  Serious: Yes (Life-Threatening)
  Sender: FDA-Public Use
  Company Number: A0719213A

PATIENT
  Sex: Female

DRUGS (6)
  1. ALBUTEROL [Suspect]
     Indication: ASTHMA
     Dosage: 2PUFF FOUR TIMES PER DAY
     Route: 055
     Dates: start: 20080301
  2. MORPHINE [Concomitant]
     Dosage: 30MG THREE TIMES PER DAY
     Dates: start: 20040101
  3. DOMPERIDONE [Concomitant]
     Dosage: 10MG THREE TIMES PER DAY
     Dates: start: 20040101
  4. FLUOXETINE [Concomitant]
     Dosage: 3CAP PER DAY
     Dates: start: 20040101
  5. STATEX [Concomitant]
     Dosage: 5MG TWICE PER DAY
     Dates: start: 20040101
  6. SENOKOT [Concomitant]
     Dosage: 2TAB AT NIGHT
     Dates: start: 20040101

REACTIONS (3)
  - DEVICE INEFFECTIVE [None]
  - DYSPNOEA [None]
  - PHARMACEUTICAL PRODUCT COMPLAINT [None]
